FAERS Safety Report 5533530-X (Version None)
Quarter: 2007Q4

REPORT INFORMATION
  Report Type: 
  Country: None (occurrence: None)
  Receive Date: 20071204
  Receipt Date: 20071122
  Transmission Date: 20080405
  Serious: Yes (Hospitalization)
  Sender: FDA-Public Use
  Company Number: BR-PFIZER INC-2007099276

PATIENT
  Sex: Female
  Weight: 44 kg

DRUGS (2)
  1. XALATAN [Suspect]
     Indication: GLAUCOMA
     Route: 047
  2. CARDIAC THERAPY [Concomitant]

REACTIONS (1)
  - CATARACT OPERATION [None]
